FAERS Safety Report 5352200-4 (Version None)
Quarter: 2007Q2

REPORT INFORMATION
  Report Type: 
  Country: None (occurrence: None)
  Receive Date: 20070611
  Receipt Date: 20070608
  Transmission Date: 20071010
  Serious: Yes (Hospitalization, Disabling, Other)
  Sender: FDA-Public Use
  Company Number: FI-BRISTOL-MYERS SQUIBB COMPANY-13806336

PATIENT
  Age: 72 Year
  Sex: Female

DRUGS (7)
  1. SENDOXAN [Suspect]
     Indication: BURKITT'S LYMPHOMA
     Dates: start: 20060601, end: 20061001
  2. TREXAN (ORION) [Suspect]
     Indication: BURKITT'S LYMPHOMA
     Dates: start: 20060601, end: 20061001
  3. PREDNISONE TAB [Suspect]
     Indication: BURKITT'S LYMPHOMA
     Dates: start: 20060601, end: 20061001
  4. MABTHERA [Suspect]
     Indication: BURKITT'S LYMPHOMA
     Dates: start: 20060601, end: 20061001
  5. ADRIAMYCIN PFS [Suspect]
     Indication: BURKITT'S LYMPHOMA
     Dates: start: 20060601, end: 20061001
  6. ONCOVIN [Suspect]
     Indication: BURKITT'S LYMPHOMA
     Dates: start: 20060601, end: 20061001
  7. CYTARABINE [Suspect]
     Indication: BURKITT'S LYMPHOMA
     Dates: start: 20060601, end: 20061001

REACTIONS (1)
  - PROGRESSIVE MULTIFOCAL LEUKOENCEPHALOPATHY [None]
